FAERS Safety Report 12579808 (Version 3)
Quarter: 2016Q3

REPORT INFORMATION
  Report Type: Spontaneous
  Country: IT (occurrence: IT)
  Receive Date: 20160721
  Receipt Date: 20160811
  Transmission Date: 20161109
  Serious: Yes (Other)
  Sender: FDA-Public Use
  Company Number: IT-PFIZER INC-2016341199

PATIENT
  Age: 50 Year
  Sex: Female

DRUGS (3)
  1. FARMORUBICINA [Suspect]
     Active Substance: EPIRUBICIN HYDROCHLORIDE
     Dosage: 90 MG, CYCLIC
     Route: 042
     Dates: start: 20151130, end: 20160111
  2. HERCEPTIN [Suspect]
     Active Substance: TRASTUZUMAB
     Indication: BREAST CANCER
     Dosage: 600 MG, CYCLIC
     Route: 058
     Dates: start: 20151130, end: 20160613
  3. ENDOXAN-BAXTER [Concomitant]
     Active Substance: CYCLOPHOSPHAMIDE
     Dosage: 600 MG/M2 OF BODY SURFACE
     Dates: start: 20151130, end: 20160111

REACTIONS (2)
  - Mitral valve incompetence [Unknown]
  - Ejection fraction decreased [Unknown]

NARRATIVE: CASE EVENT DATE: 20160624
